FAERS Safety Report 14351899 (Version 7)
Quarter: 2018Q2

REPORT INFORMATION
  Report Type: Spontaneous
  Country: CA (occurrence: CA)
  Receive Date: 20180104
  Receipt Date: 20180517
  Transmission Date: 20180711
  Serious: Yes (Other)
  Sender: FDA-Public Use
  Company Number: CA-CELLTRION INC.-2017CA011726

PATIENT

DRUGS (12)
  1. VITAMIN D                          /00107901/ [Concomitant]
     Active Substance: ERGOCALCIFEROL
     Dosage: UNK
  2. INFLECTRA [Suspect]
     Active Substance: INFLIXIMAB-DYYB
     Dosage: 310 MG, CYCLIC (EVERY 4  WEEKS)
     Route: 042
     Dates: start: 20180207
  3. CIPROFLOXACIN. [Concomitant]
     Active Substance: CIPROFLOXACIN
     Dosage: 500 MG, BID
     Route: 048
     Dates: start: 201608
  4. INFLECTRA [Suspect]
     Active Substance: INFLIXIMAB-DYYB
     Indication: CROHN^S DISEASE
     Dosage: 313 MG, CYCLIC (EVERY 0, 2, 6 WEEKS, THEN EVERY 8 WEEKS)
     Route: 042
     Dates: start: 20170130
  5. INFLECTRA [Suspect]
     Active Substance: INFLIXIMAB-DYYB
     Dosage: 310 MG, CYCLIC (EVERY 4  WEEKS)
     Route: 042
     Dates: start: 20180312
  6. IMURAN [Concomitant]
     Active Substance: AZATHIOPRINE
     Dosage: 3 TABLETS (DF), DAILY
     Route: 048
     Dates: start: 201608
  7. INFLECTRA [Suspect]
     Active Substance: INFLIXIMAB-DYYB
     Dosage: 310 MG, CYCLIC (EVERY 4  WEEKS)
     Route: 042
     Dates: start: 20180410
  8. PREDNISONE. [Concomitant]
     Active Substance: PREDNISONE
     Dosage: 2 TABLETS (DF), DAILY
     Dates: start: 201608
  9. PREDNISONE. [Concomitant]
     Active Substance: PREDNISONE
     Dosage: WEANING 1 TABLET WEEKLY
  10. VITAMIN C [Concomitant]
     Active Substance: ASCORBIC ACID
     Dosage: UNK
  11. INFLECTRA [Suspect]
     Active Substance: INFLIXIMAB-DYYB
     Dosage: 310 MG, CYCLIC (EVERY 4  WEEKS)
     Route: 042
     Dates: start: 20171107
  12. INFLECTRA [Suspect]
     Active Substance: INFLIXIMAB-DYYB
     Dosage: 310 MG, CYCLIC (EVERY 4  WEEKS)
     Route: 042

REACTIONS (12)
  - Joint dislocation [Not Recovered/Not Resolved]
  - Intestinal perforation [Unknown]
  - Intestinal obstruction [Unknown]
  - Drug level decreased [Unknown]
  - Off label use [Unknown]
  - Condition aggravated [Unknown]
  - Blood pressure fluctuation [Unknown]
  - Abscess [Recovered/Resolved]
  - Accident [Unknown]
  - Fall [Unknown]
  - Drug effect incomplete [Not Recovered/Not Resolved]
  - Incorrect drug administration duration [Unknown]

NARRATIVE: CASE EVENT DATE: 20170831
